FAERS Safety Report 24304414 (Version 1)
Quarter: 2024Q3

REPORT INFORMATION
  Report Type: Spontaneous
  Country: US (occurrence: US)
  Receive Date: 20240910
  Receipt Date: 20240910
  Transmission Date: 20241016
  Serious: Yes (Death, Other)
  Sender: GILEAD
  Company Number: US-GILEAD-2024-0687261

PATIENT
  Age: 30 Year
  Sex: Male

DRUGS (2)
  1. LENACAPAVIR [Suspect]
     Active Substance: LENACAPAVIR
     Indication: HIV infection
     Dosage: 972 MG (2 X 1.5ML) IN TWO SEPARATE SITES EVERY 6 MONTHS
     Route: 058
     Dates: start: 202312
  2. TROGARZO [Concomitant]
     Active Substance: IBALIZUMAB-UIYK
     Dosage: 2000 MG SINGLE DOSE OVER AT LEAST 30 MINUTES, FOLLOWED BY MAINTENANCE DOSE IN 2 WEEKS
     Route: 042
     Dates: start: 202101

REACTIONS (1)
  - Death [Fatal]

NARRATIVE: CASE EVENT DATE: 20240801
